FAERS Safety Report 5061446-4 (Version None)
Quarter: 2006Q3

REPORT INFORMATION
  Report Type: 
  Country: None (occurrence: None)
  Receive Date: 20060719
  Receipt Date: 20060719
  Transmission Date: 20061208
  Serious: Yes (Hospitalization)
  Sender: FDA-Public Use
  Company Number: None

PATIENT
  Age: 77 Year
  Sex: Male

DRUGS (7)
  1. WARFARIN SODIUM [Suspect]
     Indication: PULMONARY EMBOLISM
     Dosage: FROM NON-VA SOURCE  4 MG QD
     Dates: start: 19950301
  2. FLOMAX [Concomitant]
  3. OSCAL [Concomitant]
  4. GLYBURIDE [Concomitant]
  5. METFORMIN [Concomitant]
  6. OXYBUTYNIN [Concomitant]
  7. ZOCOR [Concomitant]

REACTIONS (1)
  - HAEMATURIA [None]
